FAERS Safety Report 7413226-X (Version None)
Quarter: 2011Q2

REPORT INFORMATION
  Report Type: 
  Country: None (occurrence: None)
  Receive Date: 20110408
  Receipt Date: 20110408
  Transmission Date: 20111010
  Serious: Yes (Hospitalization)
  Sender: FDA-Public Use
  Company Number: None

PATIENT
  Age: 65 Year
  Sex: Male

DRUGS (1)
  1. ISOSORBIDE DINITRATE [Suspect]
     Dates: start: 20110307

REACTIONS (2)
  - SYNCOPE [None]
  - FALL [None]
